FAERS Safety Report 25897336 (Version 1)
Quarter: 2025Q4

REPORT INFORMATION
  Report Type: Spontaneous
  Country: US (occurrence: None)
  Receive Date: 20251008
  Receipt Date: 20251008
  Transmission Date: 20260118
  Serious: No
  Sender: FDA-CTU
  Company Number: None

PATIENT
  Sex: Male

DRUGS (4)
  1. TICE BCG [Suspect]
     Active Substance: BACILLUS CALMETTE-GUERIN SUBSTRAIN TICE LIVE ANTIGEN
  2. DOCETAXEL [Suspect]
     Active Substance: DOCETAXEL
  3. GEMCITABINE [Suspect]
     Active Substance: GEMCITABINE
  4. ADSTILADRIN [Suspect]
     Active Substance: NADOFARAGENE FIRADENOVEC-VNCG

REACTIONS (2)
  - Clinically isolated syndrome [None]
  - Therapy cessation [None]
